FAERS Safety Report 25072759 (Version 1)
Quarter: 2025Q1

REPORT INFORMATION
  Report Type: Spontaneous
  Country: IN (occurrence: IN)
  Receive Date: 20250313
  Receipt Date: 20250313
  Transmission Date: 20250409
  Serious: Yes (Other)
  Sender: AAVIS PHARMACEUTICALS
  Company Number: IN-AVS-000040

PATIENT
  Age: 19 Year
  Sex: Female

DRUGS (2)
  1. KETOCONAZOLE [Suspect]
     Active Substance: KETOCONAZOLE
     Indication: Pituitary-dependent Cushing^s syndrome
     Route: 048
  2. KETOCONAZOLE [Suspect]
     Active Substance: KETOCONAZOLE
     Indication: Pituitary-dependent Cushing^s syndrome
     Dosage: AFTER 3MONTHS
     Route: 048

REACTIONS (2)
  - Idiopathic intracranial hypertension [Recovering/Resolving]
  - Product use in unapproved indication [Unknown]
